FAERS Safety Report 19232631 (Version 2)
Quarter: 2021Q2

REPORT INFORMATION
  Report Type: Spontaneous
  Country: US (occurrence: US)
  Receive Date: 20210507
  Receipt Date: 20210510
  Transmission Date: 20210717
  Serious: Yes (Other)
  Sender: FDA-Public Use
  Company Number: US-INFO-001233

PATIENT
  Age: 49 Year
  Sex: Female

DRUGS (1)
  1. METRONIDAZOLE. [Suspect]
     Active Substance: METRONIDAZOLE
     Indication: BACTERIAL VAGINOSIS
     Dosage: PREVIOUSLY TAKEN 500 MG ORALLY 3 TIMES A DAY WHICH SHE TOOK 4 TO 5 TIMES PER WEEK FOR 2 MONTHS
     Route: 042

REACTIONS (1)
  - Pancytopenia [Recovering/Resolving]
